FAERS Safety Report 4475493-4 (Version None)
Quarter: 2004Q4

REPORT INFORMATION
  Report Type: 
  Country: None (occurrence: None)
  Receive Date: 20041014
  Receipt Date: 20041014
  Transmission Date: 20050328
  Serious: Yes (Hospitalization)
  Sender: FDA-Public Use
  Company Number: None

PATIENT
  Age: 48 Year
  Sex: Male
  Weight: 68.1 kg

DRUGS (8)
  1. FUROSEMIDE [Suspect]
     Indication: ASCITES
     Dosage: 20 MG BID
  2. FUROSEMIDE [Suspect]
     Indication: OEDEMA
     Dosage: 20 MG BID
  3. IBUPROFEN [Suspect]
     Indication: BACK PAIN
     Dosage: 400 MG BID
  4. THIAMINE [Concomitant]
  5. OMPERAZOLE [Concomitant]
  6. FOLIC ACID [Concomitant]
  7. PROPRANOLOL [Concomitant]
  8. MULTI-VITAMIN [Concomitant]

REACTIONS (3)
  - ASCITES [None]
  - CHROMATURIA [None]
  - RENAL FAILURE ACUTE [None]
